FAERS Safety Report 7581470-7 (Version None)
Quarter: 2011Q2

REPORT INFORMATION
  Report Type: 
  Country: None (occurrence: None)
  Receive Date: 20110629
  Receipt Date: 20110615
  Transmission Date: 20111010
  Serious: Yes (Other)
  Sender: FDA-Public Use
  Company Number: CA-BAYER-2011-051571

PATIENT
  Sex: Female

DRUGS (1)
  1. CIPROFLOXACIN HCL [Suspect]
     Indication: KIDNEY INFECTION
     Dosage: UNK
     Dates: start: 20100426

REACTIONS (13)
  - PAIN IN EXTREMITY [None]
  - ANHEDONIA [None]
  - EMOTIONAL DISTRESS [None]
  - DECREASED ACTIVITY [None]
  - MENTAL DISORDER [None]
  - TENDON INJURY [None]
  - PAIN [None]
  - ARTHRALGIA [None]
  - MOBILITY DECREASED [None]
  - ANXIETY [None]
  - MUSCULOSKELETAL PAIN [None]
  - TENDON RUPTURE [None]
  - GAIT DISTURBANCE [None]
